FAERS Safety Report 10585372 (Version 6)
Quarter: 2015Q2

REPORT INFORMATION
  Report Type: Spontaneous
  Country: US (occurrence: US)
  Receive Date: 20141114
  Receipt Date: 20150622
  Transmission Date: 20150821
  Serious: Yes (Hospitalization, Disabling, Other)
  Sender: FDA-Public Use
  Company Number: US-009507513-1411USA006155

PATIENT
  Sex: Female
  Weight: 73.47 kg

DRUGS (3)
  1. FOSAMAX [Suspect]
     Active Substance: ALENDRONATE SODIUM
     Dosage: 70 MG, QW
     Route: 048
     Dates: start: 20021209, end: 20060605
  2. FOSAMAX [Suspect]
     Active Substance: ALENDRONATE SODIUM
     Indication: OSTEOPOROSIS
     Dosage: 10 MG, UNK
     Route: 048
     Dates: start: 19991229, end: 20021209
  3. FOSAMAX PLUS D [Suspect]
     Active Substance: ALENDRONATE SODIUM\CHOLECALCIFEROL
     Indication: OSTEOPOROSIS
     Dosage: 70 MG/2800 MG, UNK
     Route: 048
     Dates: start: 20060605, end: 20070823

REACTIONS (49)
  - Nephrectomy [Unknown]
  - Hysterectomy [Unknown]
  - Hypertension [Unknown]
  - Post procedural haemorrhage [Unknown]
  - Osteoarthritis [Unknown]
  - Appendicectomy [Unknown]
  - Constipation [Unknown]
  - Fractured sacrum [Unknown]
  - Coronary arterial stent insertion [Unknown]
  - Sleep disorder [Unknown]
  - Fluid overload [Unknown]
  - Pneumonia [Unknown]
  - Arthralgia [Not Recovered/Not Resolved]
  - Intramedullary rod insertion [Unknown]
  - Surgery [Unknown]
  - Spinal compression fracture [Unknown]
  - Ecchymosis [Unknown]
  - Deep vein thrombosis [Unknown]
  - Deep vein thrombosis [Unknown]
  - Arthralgia [Unknown]
  - Spinal operation [Unknown]
  - Spinal fracture [Unknown]
  - Hyperlipidaemia [Unknown]
  - Leukocytosis [Unknown]
  - Post herpetic neuralgia [Unknown]
  - Vena cava filter insertion [Unknown]
  - Renal cell carcinoma [Unknown]
  - Fall [Unknown]
  - Ankle fracture [Unknown]
  - Nutritional condition abnormal [Unknown]
  - Peripheral vascular disorder [Unknown]
  - Femur fracture [Unknown]
  - Pulmonary embolism [Unknown]
  - Subcutaneous abscess [Unknown]
  - Adrenal disorder [Unknown]
  - Herpes zoster [Unknown]
  - Fall [Unknown]
  - Vertebroplasty [Unknown]
  - Joint resurfacing surgery [Unknown]
  - Fractured sacrum [Unknown]
  - Limb asymmetry [Unknown]
  - Nephropathy [Unknown]
  - Myocardial infarction [Unknown]
  - Knee arthroplasty [Unknown]
  - Osteoporosis [Unknown]
  - Spinal fracture [Unknown]
  - Coronary artery disease [Unknown]
  - Intervertebral disc disorder [Unknown]
  - Oedema peripheral [Not Recovered/Not Resolved]

NARRATIVE: CASE EVENT DATE: 2003
